FAERS Safety Report 9838682 (Version 1)
Quarter: 2014Q1

REPORT INFORMATION
  Report Type: Spontaneous
  Country: US (occurrence: US)
  Receive Date: 20140123
  Receipt Date: 20140123
  Transmission Date: 20141002
  Serious: Yes (Other)
  Sender: FDA-Public Use
  Company Number: US-JNJFOC-20140110639

PATIENT
  Sex: Male
  Weight: 47.63 kg

DRUGS (3)
  1. REMICADE [Suspect]
     Indication: CROHN^S DISEASE
     Dosage: START DATE: COUPLE OF YEARS AGO
     Route: 042
     Dates: end: 2013
  2. REMICADE [Suspect]
     Indication: CROHN^S DISEASE
     Route: 042
     Dates: start: 2013
  3. METHOTREXATE [Concomitant]
     Indication: CROHN^S DISEASE
     Route: 048

REACTIONS (5)
  - Cardiac disorder [Unknown]
  - Corneal disorder [Recovering/Resolving]
  - Rheumatic fever [Unknown]
  - Streptococcal infection [Unknown]
  - Crohn^s disease [Not Recovered/Not Resolved]
